FAERS Safety Report 7213694-2 (Version None)
Quarter: 2011Q1

REPORT INFORMATION
  Report Type: 
  Country: None (occurrence: None)
  Receive Date: 20110106
  Receipt Date: 20101231
  Transmission Date: 20110831
  Serious: Yes (Death)
  Sender: FDA-Public Use
  Company Number: US-PFIZER INC-2011000495

PATIENT
  Age: 73 Year
  Sex: Female

DRUGS (1)
  1. GLIBENCLAMIDE [Suspect]
     Route: 048

REACTIONS (2)
  - TOXICITY TO VARIOUS AGENTS [None]
  - MEDICATION ERROR [None]
